FAERS Safety Report 19634716 (Version 1)
Quarter: 2021Q3

REPORT INFORMATION
  Report Type: Spontaneous
  Country: RU (occurrence: RU)
  Receive Date: 20210730
  Receipt Date: 20210730
  Transmission Date: 20211014
  Serious: Yes (Other)
  Sender: FDA-Public Use
  Company Number: RU-AMGEN-RUSSP2021114289

PATIENT

DRUGS (2)
  1. ROMIPLOSTIM [Suspect]
     Active Substance: ROMIPLOSTIM
     Indication: OFF LABEL USE
  2. ROMIPLOSTIM [Suspect]
     Active Substance: ROMIPLOSTIM
     Indication: WISKOTT-ALDRICH SYNDROME
     Dosage: 9?10 MICROGRAM/KILOGRAM, QWK
     Route: 065

REACTIONS (3)
  - Vasculitis [Unknown]
  - Off label use [Unknown]
  - Arterial thrombosis [Unknown]
